FAERS Safety Report 4762649-6 (Version None)
Quarter: 2005Q3

REPORT INFORMATION
  Report Type: 
  Country: None (occurrence: None)
  Receive Date: 20050907
  Receipt Date: 20041110
  Transmission Date: 20060218
  Serious: Yes (Death, Hospitalization, Disabling)
  Sender: FDA-Public Use
  Company Number: 2004AP05757

PATIENT
  Age: 26996 Day
  Sex: Female
  Weight: 56 kg

DRUGS (6)
  1. IRESSA [Suspect]
     Indication: NON-SMALL CELL LUNG CANCER
     Route: 048
     Dates: start: 20040214
  2. TAPAZOLE [Concomitant]
     Indication: HYPERTHYROIDISM
     Route: 065
  3. LANOXIN [Concomitant]
     Indication: ATRIAL FIBRILLATION
     Route: 065
  4. COUMADIN [Concomitant]
     Indication: ATRIAL FIBRILLATION
     Route: 065
  5. TENORMIN [Concomitant]
     Indication: HYPERTENSION
     Route: 065
  6. CIBADREX [Concomitant]
     Indication: HYPERTENSION
     Route: 065

REACTIONS (5)
  - DEEP VEIN THROMBOSIS [None]
  - INFECTED SKIN ULCER [None]
  - PSEUDOMONAS INFECTION [None]
  - SKIN ULCER [None]
  - VENOUS THROMBOSIS [None]
